FAERS Safety Report 16074826 (Version 1)
Quarter: 2019Q1

REPORT INFORMATION
  Report Type: Report from Study
  Country: GB (occurrence: GB)
  Receive Date: 20190314
  Receipt Date: 20190314
  Transmission Date: 20190418
  Serious: Yes (Other)
  Sender: FDA-Public Use
  Company Number: PHHY2019GB055063

PATIENT
  Sex: Female

DRUGS (2)
  1. COSENTYX [Suspect]
     Active Substance: SECUKINUMAB
     Indication: PSORIASIS
     Dosage: 150 MG, UNK
     Route: 065
  2. COSENTYX [Suspect]
     Active Substance: SECUKINUMAB
     Dosage: 300 MG, QW (PEN)
     Route: 058

REACTIONS (5)
  - Hypertrichosis [Unknown]
  - Incorrect dose administered [Unknown]
  - Psoriasis [Recovering/Resolving]
  - Weight increased [Unknown]
  - Alopecia [Recovering/Resolving]
